FAERS Safety Report 25542964 (Version 1)
Quarter: 2025Q3

REPORT INFORMATION
  Report Type: Other
  Country: US (occurrence: US)
  Receive Date: 20250711
  Receipt Date: 20250711
  Transmission Date: 20251021
  Serious: Yes (Hospitalization, Other)
  Sender: ESJAY PHARMA
  Company Number: US-ESJAY PHARMA-000826

PATIENT

DRUGS (1)
  1. SOTALOL [Suspect]
     Active Substance: SOTALOL
     Indication: Atrial fibrillation

REACTIONS (1)
  - Atrial fibrillation [Unknown]
